FAERS Safety Report 5111199-6 (Version None)
Quarter: 2006Q3

REPORT INFORMATION
  Report Type: 
  Country: None (occurrence: None)
  Receive Date: 20060920
  Receipt Date: 20060920
  Transmission Date: 20061208
  Serious: No
  Sender: FDA-Public Use
  Company Number: None

PATIENT
  Age: 68 Year
  Sex: Female
  Weight: 71 kg

DRUGS (11)
  1. FLUDARABINE [Suspect]
     Indication: CHRONIC LYMPHOCYTIC LEUKAEMIA
     Dosage: X5DAYS IV
     Route: 042
     Dates: start: 20050830, end: 20050903
  2. FLUDARABINE [Suspect]
     Indication: SMALL CELL CARCINOMA
     Dosage: X5DAYS IV
     Route: 042
     Dates: start: 20050830, end: 20050903
  3. SYNTHROID [Concomitant]
  4. TYLENOL [Concomitant]
  5. KEFLEX [Concomitant]
  6. ACYLOVIR [Concomitant]
  7. PROTONIX [Concomitant]
  8. BENADRYL [Concomitant]
  9. PREDNISONE [Concomitant]
  10. ATIVAN [Concomitant]
  11. RITUXAN [Concomitant]

REACTIONS (7)
  - COORDINATION ABNORMAL [None]
  - DIZZINESS [None]
  - HYPOAESTHESIA [None]
  - NEUROPATHY PERIPHERAL [None]
  - NUCLEAR MAGNETIC RESONANCE IMAGING ABNORMAL [None]
  - NYSTAGMUS [None]
  - URINARY TRACT INFECTION [None]
